FAERS Safety Report 5101241-0 (Version None)
Quarter: 2006Q3

REPORT INFORMATION
  Report Type: 
  Country: None (occurrence: None)
  Receive Date: 20060911
  Receipt Date: 20060901
  Transmission Date: 20061208
  Serious: Yes (Hospitalization)
  Sender: FDA-Public Use
  Company Number: JP-BRISTOL-MYERS SQUIBB COMPANY-13499678

PATIENT
  Age: 66 Year
  Sex: Male

DRUGS (11)
  1. PARAPLATIN [Suspect]
     Indication: NON-SMALL CELL LUNG CANCER
     Route: 041
     Dates: start: 20051128, end: 20051222
  2. TAXOL [Suspect]
     Indication: NON-SMALL CELL LUNG CANCER
     Route: 041
     Dates: start: 20051128, end: 20051222
  3. SORAFENIB [Suspect]
     Indication: NON-SMALL CELL LUNG CANCER
     Route: 048
     Dates: start: 20051129, end: 20060108
  4. DECADRON [Concomitant]
     Route: 041
     Dates: start: 20051128, end: 20051222
  5. RESTAMIN [Concomitant]
     Route: 048
     Dates: start: 20051128, end: 20051222
  6. ZANTAC [Concomitant]
     Route: 041
     Dates: start: 20051128, end: 20051222
  7. KYTRIL [Concomitant]
     Route: 041
     Dates: start: 20051128, end: 20051222
  8. LOXONIN [Concomitant]
     Route: 048
     Dates: start: 20051201
  9. MUCOSTA [Concomitant]
     Route: 048
     Dates: start: 20051201
  10. POSTERISAN FORTE [Concomitant]
     Dates: start: 20051216, end: 20051220
  11. PURSENNID [Concomitant]
     Route: 048
     Dates: start: 20051217

REACTIONS (2)
  - DIZZINESS [None]
  - ELECTROCARDIOGRAM QT PROLONGED [None]
